FAERS Safety Report 6920414-5 (Version None)
Quarter: 2010Q3

REPORT INFORMATION
  Report Type: 
  Country: None (occurrence: None)
  Receive Date: 20100812
  Receipt Date: 20100804
  Transmission Date: 20110219
  Serious: Yes (Hospitalization, Other)
  Sender: FDA-Public Use
  Company Number: DE-BIOGENIDEC-2010BI026610

PATIENT
  Age: 48 Year
  Sex: Male
  Weight: 76 kg

DRUGS (5)
  1. TYSABRI [Suspect]
     Indication: MULTIPLE SCLEROSIS
     Route: 042
     Dates: start: 20071217, end: 20091020
  2. CYCLOPHOSPHAMIDE [Concomitant]
     Indication: MULTIPLE SCLEROSIS
     Dates: start: 20100607, end: 20100607
  3. CYCLOPHOSPHAMIDE [Concomitant]
     Dates: start: 20100713, end: 20100713
  4. MINERAL TAB [Concomitant]
  5. VITAMIN A [Concomitant]

REACTIONS (1)
  - MALIGNANT MELANOMA [None]
